FAERS Safety Report 12471177 (Version 1)
Quarter: 2016Q2

REPORT INFORMATION
  Report Type: Spontaneous
  Country: US (occurrence: None)
  Receive Date: 20160615
  Receipt Date: 20160615
  Transmission Date: 20160815
  Serious: No
  Sender: FDA-Public Use
  Company Number: None

PATIENT
  Age: 51 Year
  Sex: Female

DRUGS (26)
  1. VOLTAREN [Concomitant]
     Active Substance: DICLOFENAC SODIUM
  2. PROPO-N/APAP [Concomitant]
  3. CLINDAMYCIN [Concomitant]
     Active Substance: CLINDAMYCIN\CLINDAMYCIN PHOSPHATE
  4. CHLORHEX [Concomitant]
  5. AMBIEN [Concomitant]
     Active Substance: ZOLPIDEM TARTRATE
  6. SUCRALFATE. [Concomitant]
     Active Substance: SUCRALFATE
  7. DETROL [Concomitant]
     Active Substance: TOLTERODINE TARTRATE
  8. EFFEXOR [Concomitant]
     Active Substance: VENLAFAXINE HYDROCHLORIDE
  9. OXYCODONE AND ACETAMINOPHEN [Concomitant]
     Active Substance: ACETAMINOPHEN\OXYCODONE HYDROCHLORIDE
  10. PROMETHAZINE [Concomitant]
     Active Substance: PROMETHAZINE\PROMETHAZINE HYDROCHLORIDE
  11. ZOLPIDEM [Concomitant]
     Active Substance: ZOLPIDEM\ZOLPIDEM TARTRATE
  12. BACLOFEN. [Concomitant]
     Active Substance: BACLOFEN
  13. PAROXETINE. [Concomitant]
     Active Substance: PAROXETINE
  14. OXYBUTYNIN [Concomitant]
     Active Substance: OXYBUTYNIN
  15. LEVAQUIN [Concomitant]
     Active Substance: LEVOFLOXACIN
  16. REBIF [Suspect]
     Active Substance: INTERFERON BETA-1A
     Indication: MULTIPLE SCLEROSIS
     Route: 058
     Dates: start: 20100317
  17. LOVAZA [Concomitant]
     Active Substance: OMEGA-3-ACID ETHYL ESTERS
  18. TOVIAZ [Concomitant]
     Active Substance: FESOTERODINE FUMARATE
  19. AZATHIOPRINE. [Concomitant]
     Active Substance: AZATHIOPRINE
  20. CYCLOBENZAPR [Concomitant]
  21. CHANTIX [Concomitant]
     Active Substance: VARENICLINE TARTRATE
  22. MECLIZINE [Concomitant]
     Active Substance: MECLIZINE HYDROCHLORIDE
  23. CLOTRIM/BETA [Concomitant]
  24. AMPHETAMINE [Concomitant]
     Active Substance: AMPHETAMINE
  25. SOLU-MEDROL [Concomitant]
     Active Substance: METHYLPREDNISOLONE SODIUM SUCCINATE
  26. AMANTADINE [Concomitant]
     Active Substance: AMANTADINE

REACTIONS (2)
  - Chills [None]
  - Influenza [None]
